FAERS Safety Report 5757183-0 (Version None)
Quarter: 2008Q2

REPORT INFORMATION
  Report Type: 
  Country: None (occurrence: None)
  Receive Date: 20080603
  Receipt Date: 20080523
  Transmission Date: 20081010
  Serious: Yes (Other)
  Sender: FDA-Public Use
  Company Number: US-JNJFOC-20080505377

PATIENT
  Sex: Female
  Weight: 55.79 kg

DRUGS (3)
  1. ULTRAM [Suspect]
     Indication: PAIN
     Route: 048
  2. ESTRATEST [Concomitant]
     Indication: HORMONE REPLACEMENT THERAPY
     Route: 048
  3. PREMARIN [Concomitant]
     Indication: HORMONE REPLACEMENT THERAPY
     Route: 065

REACTIONS (2)
  - HYPERTENSION [None]
  - VOMITING [None]
